FAERS Safety Report 5300247-6 (Version None)
Quarter: 2007Q2

REPORT INFORMATION
  Report Type: 
  Country: None (occurrence: None)
  Receive Date: 20070411
  Receipt Date: 20070326
  Transmission Date: 20071010
  Serious: Yes (Hospitalization)
  Sender: FDA-Public Use
  Company Number: DSA_61475_2007

PATIENT
  Age: 4 Year
  Sex: Female
  Weight: 18.1439 kg

DRUGS (1)
  1. DIASTAT [Suspect]
     Indication: CONVULSION
     Dosage: DF PRN SC
     Route: 058
     Dates: start: 20070315

REACTIONS (4)
  - CONVULSION [None]
  - DRUG INEFFECTIVE [None]
  - DYSPNOEA [None]
  - LOSS OF CONSCIOUSNESS [None]
